FAERS Safety Report 5278742-8 (Version None)
Quarter: 2007Q1

REPORT INFORMATION
  Report Type: 
  Country: None (occurrence: None)
  Receive Date: 20070328
  Receipt Date: 20070312
  Transmission Date: 20070707
  Serious: Yes (Other)
  Sender: FDA-Public Use
  Company Number: US-SANOFI-SYNTHELABO-A03200702273

PATIENT
  Sex: Male

DRUGS (8)
  1. VICODIN [Concomitant]
     Dosage: 500/5
     Route: 048
  2. AMBIEN [Suspect]
     Indication: INSOMNIA
     Route: 048
     Dates: start: 20000101, end: 20060101
  3. AMBIEN [Suspect]
     Indication: PAIN
     Route: 048
     Dates: start: 20000101, end: 20060101
  4. AVANDIA [Concomitant]
     Route: 048
  5. LIPITOR [Concomitant]
     Route: 048
  6. AMARYL [Concomitant]
     Route: 048
  7. PROZAC [Concomitant]
     Route: 048
  8. NEURONTIN [Concomitant]
     Route: 048

REACTIONS (2)
  - AMNESIA [None]
  - IMPAIRED DRIVING ABILITY [None]
